FAERS Safety Report 21266952 (Version 1)
Quarter: 2022Q3

REPORT INFORMATION
  Report Type: Spontaneous
  Country: CA (occurrence: CA)
  Receive Date: 20220829
  Receipt Date: 20220829
  Transmission Date: 20221026
  Serious: Yes (Other)
  Sender: FDA-Public Use
  Company Number: CA-MYLANLABS-2022M1089978

PATIENT
  Age: 12 Year
  Sex: Female

DRUGS (4)
  1. LAMOTRIGINE [Suspect]
     Active Substance: LAMOTRIGINE
     Indication: Epilepsy
     Dosage: UNK
     Route: 065
  2. CARBAMAZEPINE [Suspect]
     Active Substance: CARBAMAZEPINE
     Indication: Epilepsy
     Dosage: UNK
     Route: 065
  3. CLOBAZAM [Suspect]
     Active Substance: CLOBAZAM
     Indication: Epilepsy
     Dosage: UNK
     Route: 065
  4. NABIXIMOLS [Concomitant]
     Active Substance: NABIXIMOLS
     Indication: Epilepsy
     Dosage: 5MG/KG/DAY OF CANNABIDIOL AND TITRATED TO 12.5MG/KG/DAY (CORRESPONDING TETRAHYDRO...
     Route: 048

REACTIONS (1)
  - Drug ineffective [Unknown]
